FAERS Safety Report 8320541-4 (Version None)
Quarter: 2012Q2

REPORT INFORMATION
  Report Type: 
  Country: None (occurrence: None)
  Receive Date: 20120430
  Receipt Date: 20120424
  Transmission Date: 20120825
  Serious: Yes (Other)
  Sender: FDA-Public Use
  Company Number: US-PFIZER INC-2012018507

PATIENT
  Sex: Female
  Weight: 155 kg

DRUGS (3)
  1. EFFEXOR XR [Suspect]
     Dosage: 150 MG, 1X/DAY
     Route: 048
     Dates: start: 20110501, end: 20111201
  2. PREMARIN [Concomitant]
     Indication: HYSTERECTOMY
     Dosage: UNK
     Dates: end: 20110101
  3. EFFEXOR XR [Suspect]
     Indication: DEPRESSION
     Dosage: 75 MG, 1X/DAY
     Route: 048
     Dates: start: 20100201, end: 20110501

REACTIONS (7)
  - PNEUMONIA [None]
  - CEREBROVASCULAR ACCIDENT [None]
  - NASOPHARYNGITIS [None]
  - CONFUSIONAL STATE [None]
  - MALAISE [None]
  - DISTURBANCE IN ATTENTION [None]
  - DRUG INEFFECTIVE [None]
